FAERS Safety Report 25441801 (Version 6)
Quarter: 2025Q4

REPORT INFORMATION
  Report Type: Spontaneous
  Country: JP (occurrence: JP)
  Receive Date: 20250616
  Receipt Date: 20251125
  Transmission Date: 20260118
  Serious: Yes (Hospitalization)
  Sender: ALEXION PHARMACEUTICALS
  Company Number: JP-ASTRAZENECA-250056640_013120_P_1

PATIENT
  Age: 46 Year
  Sex: Male
  Weight: 70 kg

DRUGS (9)
  1. IMFINZI [Suspect]
     Active Substance: DURVALUMAB
     Indication: Bile duct cancer
     Dosage: 1500 MILLIGRAM, Q3W
     Dates: start: 20250326, end: 20250421
  2. GEMCITABINE [Concomitant]
     Active Substance: GEMCITABINE
     Indication: Bile duct cancer
     Dosage: DOSE UNKNOWN
  3. CISPLATIN [Concomitant]
     Active Substance: CISPLATIN
     Indication: Bile duct cancer
     Dosage: DOSE UNKNOWN
  4. PALONOSETRON [Concomitant]
     Active Substance: PALONOSETRON
     Dosage: DOSE UNKNOWN
  5. DEXAMETHASONE SODIUM PHOSPHATE [Concomitant]
     Active Substance: DEXAMETHASONE SODIUM PHOSPHATE
     Dosage: DOSE UNKNOWN
  6. Glucose;Magnesium sulfate heptahydrate [Concomitant]
     Dosage: DOSE UNKNOWN
  7. LASIX [Concomitant]
     Active Substance: FUROSEMIDE
     Dosage: DOSE UNKNOWN
  8. FUROSEMIDE [Concomitant]
     Active Substance: FUROSEMIDE
     Dosage: UNK
     Route: 065
  9. Dexamethasone acetate;Dexamethasone sodium phosphate [Concomitant]

REACTIONS (1)
  - Immune-mediated dermatitis [Recovering/Resolving]

NARRATIVE: CASE EVENT DATE: 20250506
